FAERS Safety Report 5947704-7 (Version None)
Quarter: 2008Q4

REPORT INFORMATION
  Report Type: 
  Country: None (occurrence: None)
  Receive Date: 20081110
  Receipt Date: 20081110
  Transmission Date: 20090506
  Serious: Yes (Other)
  Sender: FDA-Public Use
  Company Number: None

PATIENT
  Sex: Female
  Weight: 49.8957 kg

DRUGS (1)
  1. OCELLA .03/3MG BARR [Suspect]
     Indication: CONTRACEPTION
     Dosage: .03/3MG 1/DAY PO
     Route: 048
     Dates: start: 20081012, end: 20081108

REACTIONS (7)
  - ABDOMINAL DISTENSION [None]
  - DIARRHOEA [None]
  - DYSPEPSIA [None]
  - FLATULENCE [None]
  - MENORRHAGIA [None]
  - MUSCLE SPASMS [None]
  - PRODUCT QUALITY ISSUE [None]
